FAERS Safety Report 22989418 (Version 2)
Quarter: 2023Q4

REPORT INFORMATION
  Report Type: Spontaneous
  Country: DE (occurrence: DE)
  Receive Date: 20230927
  Receipt Date: 20231114
  Transmission Date: 20240110
  Serious: Yes (Death, Other)
  Sender: FDA-Public Use
  Company Number: DE-BAXTER-2020BAX015736

PATIENT
  Age: 66 Year
  Sex: Male
  Weight: 70.4 kg

DRUGS (20)
  1. DOCETAXEL [Suspect]
     Active Substance: DOCETAXEL\DOCETAXEL ANHYDROUS
     Indication: Neoplasm recurrence
     Dosage: UNK
     Route: 065
  2. DOCETAXEL [Suspect]
     Active Substance: DOCETAXEL\DOCETAXEL ANHYDROUS
     Indication: Metastatic neoplasm
     Dosage: 75 MG/M2 (DAY 1 )
     Route: 065
     Dates: start: 201908
  3. FLUOROURACIL [Suspect]
     Active Substance: FLUOROURACIL
     Indication: Immunochemotherapy
     Dosage: UNK (OVER 96 HOURS)
     Route: 065
     Dates: start: 20200615, end: 20200622
  4. ATENOLOL [Suspect]
     Active Substance: ATENOLOL
     Indication: Product used for unknown indication
     Dosage: UNK
     Route: 065
  5. ELECTROLYTES NOS\MINERALS [Suspect]
     Active Substance: ELECTROLYTES NOS\MINERALS
     Indication: Parenteral nutrition
     Dosage: 10 MILLILITER, ONCE A DAY
     Route: 042
     Dates: start: 20200713, end: 20200728
  6. CARBOPLATIN [Suspect]
     Active Substance: CARBOPLATIN
     Indication: Immunochemotherapy
     Dosage: 5 MG/M2 (DAY 1 AND REPETITION ON DAY 21 )
     Route: 065
     Dates: start: 20200615, end: 20200622
  7. CETUXIMAB [Suspect]
     Active Substance: CETUXIMAB
     Indication: Metastatic neoplasm
     Dosage: 400 MILLIGRAM (3 WEEK) ()LOADING DOSE; DAY 1;
     Route: 065
  8. CETUXIMAB [Suspect]
     Active Substance: CETUXIMAB
     Indication: Neoplasm recurrence
     Dosage: 250 MG/M2 (3 WEEK) (DAY 15)
     Route: 065
  9. CETUXIMAB [Suspect]
     Active Substance: CETUXIMAB
     Dosage: 250 MG/M2 (3 WEEK ) (DAY 8 )
     Route: 065
     Dates: start: 20190830
  10. CETUXIMAB [Suspect]
     Active Substance: CETUXIMAB
     Dosage: 400 MILLIGRAM (3 WEEK) (LOADING DOSE; DAY 1;)
     Route: 065
     Dates: start: 201909
  11. CETUXIMAB [Suspect]
     Active Substance: CETUXIMAB
     Dosage: CONTINUATION OF CHEMOTHERAPY ON DAY 6 OF FIRST CYCLE
     Route: 065
     Dates: start: 201909
  12. CISPLATIN [Suspect]
     Active Substance: CISPLATIN
     Indication: Metastatic neoplasm
     Dosage: 75 MG/M2 (DAY 1 )
     Route: 065
     Dates: start: 201908
  13. CISPLATIN [Suspect]
     Active Substance: CISPLATIN
     Indication: Neoplasm recurrence
     Dosage: UNK (CONSOLIDATING RADIOCHEMOTHERAPY )
     Route: 065
     Dates: start: 201912
  14. ENOXAPARIN SODIUM [Suspect]
     Active Substance: ENOXAPARIN SODIUM
     Indication: Anticoagulant therapy
     Dosage: UNK (SHOULD BE PAUSED ONE DAY BEFORE PORT INSTALLEMENT ON 07JUL.)
     Route: 065
  15. CERNEVIT [Suspect]
     Active Substance: VITAMINS
     Indication: Parenteral nutrition
     Dosage: 750 MILLIGRAM, ONCE A DAY (ROUTE: CENTRAL VENOUS)
     Route: 042
     Dates: start: 20200713, end: 20200728
  16. OLIMEL [Suspect]
     Active Substance: AMINO ACIDS\DEXTROSE\SOYBEAN OIL
     Indication: Parenteral nutrition
     Dosage: 1500 MILLILITER, ONCE A DAY (INFUSION RUNS FROM 18:00 HOURS TO 06:00 HOURS, DOSE INCREASED )
     Route: 065
  17. OLIMEL [Suspect]
     Active Substance: AMINO ACIDS\DEXTROSE\SOYBEAN OIL
     Dosage: 1000 MILLILITER, ONCE A DAY (CENTRAL VENOUS )
     Route: 042
     Dates: start: 20200713
  18. OLIMEL [Suspect]
     Active Substance: AMINO ACIDS\DEXTROSE\SOYBEAN OIL
     Dosage: 1500 MILLILITER, ONCE A DAY
     Route: 042
     Dates: start: 20200720, end: 20200727
  19. OLIMEL [Suspect]
     Active Substance: AMINO ACIDS\DEXTROSE\SOYBEAN OIL
     Dosage: 1500 MILLILITER, ONCE A DAY (DRUG REINTRODUCED AND DISCONTINUED)
     Route: 042
     Dates: start: 20200728, end: 20200728
  20. PEMBROLIZUMAB [Suspect]
     Active Substance: PEMBROLIZUMAB
     Indication: Immunochemotherapy
     Dosage: 200 MILLIGRAM
     Route: 065
     Dates: start: 20200615, end: 20200622

REACTIONS (10)
  - Death [Fatal]
  - Cold sweat [Recovered/Resolved]
  - Chills [Recovered/Resolved]
  - Pneumonia pneumococcal [Unknown]
  - Tremor [Recovered/Resolved]
  - Unresponsive to stimuli [Recovered/Resolved]
  - Tachycardia [Recovered/Resolved]
  - Eye movement disorder [Recovered/Resolved]
  - Peripheral coldness [Recovered/Resolved]
  - Pyrexia [Recovered/Resolved]

NARRATIVE: CASE EVENT DATE: 20200726
